FAERS Safety Report 17833773 (Version 1)
Quarter: 2020Q2

REPORT INFORMATION
  Report Type: Spontaneous
  Country: US (occurrence: US)
  Receive Date: 20200528
  Receipt Date: 20200528
  Transmission Date: 20200714
  Serious: Yes (Other)
  Sender: FDA-Public Use
  Company Number: None

PATIENT
  Age: 67 Year
  Sex: Male
  Weight: 103.5 kg

DRUGS (9)
  1. SULFAMETHOXAZOLE-TRIMETHOPRIM BY AUROBINDO, GENERIC OF BACTRIM [Suspect]
     Active Substance: SULFAMETHOXAZOLE\TRIMETHOPRIM
     Indication: URINARY TRACT INFECTION
     Route: 048
     Dates: start: 20200527, end: 20200527
  2. METAPROLOL [Concomitant]
     Active Substance: METOPROLOL
  3. AMILORIDE [Concomitant]
     Active Substance: AMILORIDE
  4. VITAMIN DAILY [Concomitant]
  5. FISH OIL [Concomitant]
     Active Substance: FISH OIL
  6. NIACIN. [Concomitant]
     Active Substance: NIACIN
  7. VITAMIN D3 [Concomitant]
     Active Substance: CHOLECALCIFEROL
  8. 80MG ASPIRIN [Concomitant]
  9. NIFEDIPINE XL [Concomitant]
     Active Substance: NIFEDIPINE

REACTIONS (7)
  - Insomnia [None]
  - Nasal dryness [None]
  - Agitation [None]
  - Pruritus [None]
  - Nasal congestion [None]
  - Back pain [None]
  - Blister [None]

NARRATIVE: CASE EVENT DATE: 20200528
